FAERS Safety Report 14748078 (Version 1)
Quarter: 2018Q2

REPORT INFORMATION
  Report Type: Spontaneous
  Country: JP (occurrence: JP)
  Receive Date: 20180411
  Receipt Date: 20180411
  Transmission Date: 20180711
  Serious: Yes (Hospitalization, Other)
  Sender: FDA-Public Use
  Company Number: JP-BRISTOL-MYERS SQUIBB COMPANY-BMS-2015-003750

PATIENT
  Age: 72 Year
  Sex: Male
  Weight: 45 kg

DRUGS (4)
  1. CETUXIMAB. [Suspect]
     Active Substance: CETUXIMAB
     Indication: SQUAMOUS CELL CARCINOMA OF HEAD AND NECK
     Dosage: 370 MG, QWK
     Route: 041
     Dates: start: 20141125, end: 20150122
  2. FENTOS [Concomitant]
     Active Substance: FENTANYL
     Indication: PRODUCT USED FOR UNKNOWN INDICATION
     Dosage: UNK UNK, UNKNOWN
     Route: 061
     Dates: start: 20141226
  3. CETUXIMAB. [Suspect]
     Active Substance: CETUXIMAB
     Indication: LARYNGEAL CANCER
     Dosage: 600 MG, QWK
     Route: 041
     Dates: start: 20141120, end: 20141120
  4. LAC-B [Concomitant]
     Active Substance: BIFIDOBACTERIUM SPP.
     Indication: PRODUCT USED FOR UNKNOWN INDICATION
     Dosage: 1 G, TID
     Route: 048

REACTIONS (21)
  - White blood cell count decreased [Recovered/Resolved]
  - Blood alkaline phosphatase increased [Recovered/Resolved]
  - Pharyngeal inflammation [Recovering/Resolving]
  - Pyrexia [Unknown]
  - Hyperkalaemia [Recovered/Resolved]
  - Dermatitis acneiform [Recovering/Resolving]
  - Hypokalaemia [Recovered/Resolved]
  - Dysphonia [Recovering/Resolving]
  - Dermatitis [Recovering/Resolving]
  - Stomatitis [Recovering/Resolving]
  - Anaemia [Recovering/Resolving]
  - Aspartate aminotransferase increased [Recovered/Resolved]
  - Interstitial lung disease [Recovering/Resolving]
  - Radiation skin injury [Recovering/Resolving]
  - Paronychia [Recovering/Resolving]
  - Fatigue [Recovering/Resolving]
  - Diarrhoea [Recovered/Resolved]
  - Dry skin [Recovering/Resolving]
  - Dysphagia [Recovering/Resolving]
  - Alanine aminotransferase increased [Recovered/Resolved]
  - Hypocalcaemia [Recovered/Resolved]

NARRATIVE: CASE EVENT DATE: 20141126
